FAERS Safety Report 7908817-3 (Version None)
Quarter: 2011Q4

REPORT INFORMATION
  Report Type: 
  Country: None (occurrence: None)
  Receive Date: 20111111
  Receipt Date: 20111101
  Transmission Date: 20120403
  Serious: Yes (Hospitalization)
  Sender: FDA-Public Use
  Company Number: US-BAYER-2011-029524

PATIENT
  Age: 21 Year
  Sex: Female
  Weight: 68.027 kg

DRUGS (2)
  1. SYNTHROID [Concomitant]
     Indication: THYROID DISORDER
     Dosage: 1 DF, QD
     Route: 048
     Dates: start: 20080101
  2. YAZ [Suspect]
     Indication: OVARIAN CYST

REACTIONS (3)
  - PAIN [None]
  - GALLBLADDER DISORDER [None]
  - CHOLECYSTITIS [None]
